FAERS Safety Report 5578574-7 (Version None)
Quarter: 2007Q4

REPORT INFORMATION
  Report Type: 
  Country: None (occurrence: None)
  Receive Date: 20071227
  Receipt Date: 20071217
  Transmission Date: 20080405
  Serious: Yes (Hospitalization)
  Sender: FDA-Public Use
  Company Number: 2007SP020920

PATIENT
  Age: 50 Year
  Sex: Male

DRUGS (1)
  1. TEMODAL [Suspect]
     Indication: OLIGODENDROGLIOMA
     Dosage: ; PO ;PO
     Route: 048
     Dates: start: 20071201

REACTIONS (3)
  - BACTERIAL INFECTION [None]
  - MYALGIA [None]
  - MYOSITIS [None]
